FAERS Safety Report 7630098-9 (Version None)
Quarter: 2011Q3

REPORT INFORMATION
  Report Type: 
  Country: None (occurrence: None)
  Receive Date: 20110722
  Receipt Date: 20110713
  Transmission Date: 20111222
  Serious: Yes (Hospitalization)
  Sender: FDA-Public Use
  Company Number: SE-JNJFOC-20110102846

PATIENT
  Age: 50 Year
  Sex: Female

DRUGS (5)
  1. REMICADE [Suspect]
     Indication: RHEUMATOID ARTHRITIS
     Dosage: AS NEEDED
     Route: 042
     Dates: start: 20100924
  2. METHOTREXATE [Suspect]
     Indication: PRODUCT USED FOR UNKNOWN INDICATION
     Route: 058
     Dates: start: 20100830, end: 20101201
  3. REMICADE [Suspect]
     Route: 042
     Dates: end: 20101228
  4. REMICADE [Suspect]
     Route: 042
     Dates: start: 20101108
  5. REMICADE [Suspect]
     Route: 042
     Dates: start: 20100930

REACTIONS (3)
  - CYTOMEGALOVIRUS INFECTION [None]
  - TRANSAMINASES INCREASED [None]
  - PNEUMONIA [None]
